FAERS Safety Report 10174128 (Version 1)
Quarter: 2014Q2

REPORT INFORMATION
  Report Type: Report from Study
  Country: US (occurrence: US)
  Receive Date: 20140515
  Receipt Date: 20140515
  Transmission Date: 20141212
  Serious: Yes (Hospitalization)
  Sender: FDA-Public Use
  Company Number: US-BRISTOL-MYERS SQUIBB COMPANY-20713954

PATIENT
  Age: 61 Year
  Sex: Male
  Weight: 98.41 kg

DRUGS (1)
  1. SPRYCEL [Suspect]
     Indication: ACUTE LYMPHOCYTIC LEUKAEMIA
     Dosage: RESTARTED;140 MG DAILY PRIOR
     Dates: start: 201309

REACTIONS (3)
  - Bone marrow transplant [Unknown]
  - Nausea [Unknown]
  - Eating disorder [Unknown]
